FAERS Safety Report 10406935 (Version 1)
Quarter: 2014Q3

REPORT INFORMATION
  Report Type: Other
  Country: CN (occurrence: CN)
  Receive Date: 20140825
  Receipt Date: 20140825
  Transmission Date: 20150326
  Serious: Yes (Other)
  Sender: FDA-Public Use
  Company Number: CN-BRISTOL-MYERS SQUIBB COMPANY-21320619

PATIENT
  Age: 15 Year
  Sex: Male

DRUGS (1)
  1. TRIAMCINOLONE ACE INJ [Suspect]
     Active Substance: TRIAMCINOLONE ACETONIDE
     Indication: VITILIGO
     Dosage: 40MG/ML
     Route: 058

REACTIONS (3)
  - Blindness [Unknown]
  - Retinal artery occlusion [Unknown]
  - Cerebral infarction [Unknown]
